FAERS Safety Report 21929343 (Version 1)
Quarter: 2023Q1

REPORT INFORMATION
  Report Type: Spontaneous
  Country: US (occurrence: US)
  Receive Date: 20230131
  Receipt Date: 20230131
  Transmission Date: 20230417
  Serious: No
  Sender: FDA-Public Use
  Company Number: US-UCBSA-2022018547

PATIENT
  Age: 74 Year
  Sex: Female

DRUGS (8)
  1. KEPPRA [Suspect]
     Active Substance: LEVETIRACETAM
     Indication: Seizure prophylaxis
     Dosage: 500 MILLIGRAM, 2X/DAY (BID)
  2. CEFEPIME [Concomitant]
     Active Substance: CEFEPIME HYDROCHLORIDE
     Indication: Cellulitis
     Dosage: 2 GRAM, 2X/DAY (BID)
  3. VANCOMYCIN [Concomitant]
     Active Substance: VANCOMYCIN
     Indication: Osteomyelitis
  4. METHOCARBAMOL [Concomitant]
     Active Substance: METHOCARBAMOL
     Indication: Product used for unknown indication
     Dosage: LOWERING THE FREQUENCY
  5. GABAPENTIN [Concomitant]
     Active Substance: GABAPENTIN
     Indication: Product used for unknown indication
     Dosage: LOWERING THE FREQUENCY
  6. OXYCODONE [Concomitant]
     Active Substance: OXYCODONE
     Indication: Product used for unknown indication
  7. MORPHINE [Concomitant]
     Active Substance: MORPHINE
     Indication: Analgesic therapy
     Dosage: UNK, AS NEEDED (PRN)
  8. INSULIN NOS [Concomitant]
     Active Substance: INSULIN NOS
     Indication: Analgesic therapy

REACTIONS (1)
  - Product use in unapproved indication [Unknown]
